FAERS Safety Report 25641047 (Version 1)
Quarter: 2025Q3

REPORT INFORMATION
  Report Type: Spontaneous
  Country: US (occurrence: US)
  Receive Date: 20250804
  Receipt Date: 20250804
  Transmission Date: 20251021
  Serious: Yes (Other)
  Sender: MYLAN
  Company Number: US-MYLANLABS-2025M1065245

PATIENT
  Age: 69 Year
  Sex: Male

DRUGS (2)
  1. TRIAMCINOLONE [Suspect]
     Active Substance: TRIAMCINOLONE
     Indication: Pemphigoid
  2. CLOBETASOL [Suspect]
     Active Substance: CLOBETASOL
     Indication: Pemphigoid

REACTIONS (1)
  - Drug ineffective [Unknown]
